FAERS Safety Report 18919114 (Version 1)
Quarter: 2021Q1

REPORT INFORMATION
  Report Type: Spontaneous
  Country: GB (occurrence: GB)
  Receive Date: 20210220
  Receipt Date: 20210220
  Transmission Date: 20210420
  Serious: Yes (Hospitalization, Disabling, Other)
  Sender: FDA-Public Use
  Company Number: GB-DEXPHARM-20210207

PATIENT
  Age: 52 Year
  Sex: Female
  Weight: 88.9 kg

DRUGS (4)
  1. OMEPRAZOLE 20 MG [Suspect]
     Active Substance: OMEPRAZOLE
     Indication: HIATUS HERNIA
     Dosage: 1 X 20 THEN IN JUNE 2019 TOLD TO TAKE 2 A DAY FOR 10 DAYS
     Route: 048
     Dates: end: 202006
  2. OMEPRAZOLE 40 MG [Suspect]
     Active Substance: OMEPRAZOLE
     Indication: HIATUS HERNIA
     Dosage: 1 X 20 THEN IN JUNE 2020 TOLD TO TAKE 2 A DAY FOR 10 DAYS WHICH MADE ME WORSE
     Route: 048
     Dates: start: 202006
  3. AVAMYS [Concomitant]
     Active Substance: FLUTICASONE FUROATE
     Indication: RHINITIS
  4. PARACETAMOL [Concomitant]
     Active Substance: ACETAMINOPHEN
     Indication: HEADACHE

REACTIONS (4)
  - Intestinal obstruction [Recovering/Resolving]
  - Gastrooesophageal reflux disease [Recovering/Resolving]
  - Tinnitus [Recovering/Resolving]
  - Headache [Recovering/Resolving]
